FAERS Safety Report 15008469 (Version 1)
Quarter: 2018Q2

REPORT INFORMATION
  Report Type: Spontaneous
  Country: US (occurrence: US)
  Receive Date: 20180613
  Receipt Date: 20180613
  Transmission Date: 20180711
  Serious: No
  Sender: FDA-Public Use
  Company Number: US-GILEAD-2018-0343206

PATIENT
  Sex: Male

DRUGS (3)
  1. EPIVIR [Concomitant]
     Active Substance: LAMIVUDINE
  2. VIREAD [Suspect]
     Active Substance: TENOFOVIR DISOPROXIL FUMARATE
     Indication: PRODUCT USED FOR UNKNOWN INDICATION
     Dosage: UNK, QD
     Route: 048
     Dates: start: 20180425
  3. ISENTRESS [Concomitant]
     Active Substance: RALTEGRAVIR POTASSIUM

REACTIONS (3)
  - Product use issue [Unknown]
  - Product taste abnormal [Unknown]
  - Off label use [Unknown]
